FAERS Safety Report 10207947 (Version 1)
Quarter: 2014Q2

REPORT INFORMATION
  Report Type: Spontaneous
  Country: RO (occurrence: RO)
  Receive Date: 20140530
  Receipt Date: 20140530
  Transmission Date: 20141212
  Serious: Yes (Life-Threatening)
  Sender: FDA-Public Use
  Company Number: RO-ACTAVIS-2014-11096

PATIENT
  Age: 52 Year
  Sex: Male
  Weight: 78 kg

DRUGS (1)
  1. DOCETAXEL ACTAVIS [Suspect]
     Indication: SQUAMOUS CELL CARCINOMA OF LUNG
     Dosage: 140 MG, UNKNOWN
     Route: 042
     Dates: start: 20140507, end: 20140507

REACTIONS (5)
  - Anaphylactic shock [Recovered/Resolved]
  - Erythema [Recovered/Resolved]
  - Respiratory failure [Recovered/Resolved]
  - Back pain [Recovered/Resolved]
  - Blood pressure decreased [Recovered/Resolved]
